FAERS Safety Report 9191228 (Version 4)
Quarter: 2013Q2

REPORT INFORMATION
  Report Type: Spontaneous
  Country: US (occurrence: US)
  Receive Date: 20130326
  Receipt Date: 20130426
  Transmission Date: 20140414
  Serious: Yes (Hospitalization, Other)
  Sender: FDA-Public Use
  Company Number: US-BAYER-2013-037511

PATIENT
  Age: 30 Year
  Sex: Female
  Weight: 68 kg

DRUGS (9)
  1. BAYER GENUINE ASPIRIN ORIGINAL STRENGTH [Suspect]
     Indication: GALLBLADDER PAIN
     Dosage: UNK UNK, QID
     Route: 048
     Dates: start: 2006, end: 200612
  2. BAYER GENUINE ASPIRIN ORIGINAL STRENGTH [Suspect]
     Indication: POST PROCEDURAL SWELLING
     Dosage: TOOK LONGER THAN 1 MONTH
  3. YASMIN [Suspect]
     Indication: CONTRACEPTION
     Dosage: UNK
     Dates: start: 200110
  4. YASMIN [Suspect]
     Indication: PREMENSTRUAL SYNDROME
  5. YASMIN [Suspect]
     Indication: POLYMENORRHOEA
  6. TYLENOL [PARACETAMOL] [Concomitant]
     Dosage: UNK UNK, QID
  7. LIOTHYRONINE [Concomitant]
  8. MULTIVITAMINS [Concomitant]
  9. SYNTHROID [Concomitant]

REACTIONS (14)
  - Cholelithiasis [Not Recovered/Not Resolved]
  - Gallbladder pain [Not Recovered/Not Resolved]
  - Pain [Not Recovered/Not Resolved]
  - Flatulence [Not Recovered/Not Resolved]
  - Abdominal distension [Not Recovered/Not Resolved]
  - Pain [Not Recovered/Not Resolved]
  - Gastrointestinal ulcer perforation [Recovered/Resolved]
  - Chemical peritonitis [None]
  - Incorrect drug administration duration [None]
  - Drug ineffective [None]
  - Post cholecystectomy syndrome [None]
  - Irritable bowel syndrome [None]
  - Abdominal distension [None]
  - Abdominal pain upper [None]
